FAERS Safety Report 25431853 (Version 1)
Quarter: 2025Q2

REPORT INFORMATION
  Report Type: Spontaneous
  Country: US (occurrence: US)
  Receive Date: 20250613
  Receipt Date: 20250613
  Transmission Date: 20250717
  Serious: Yes (Life-Threatening, Other)
  Sender: RARE DISEASE THERAPEUTICS, INC.
  Company Number: US-Rare Disease Therapeutics, Inc.-2178598

PATIENT
  Age: 66 Year
  Sex: Male

DRUGS (1)
  1. ANAVIP [Suspect]
     Active Substance: PIT VIPER (CROTALINAE) IMMUNE GLOBULIN ANTIVENIN (EQUINE)
     Dates: start: 20230630

REACTIONS (5)
  - Swollen tongue [Unknown]
  - Anaphylactic reaction [Unknown]
  - Swelling face [Unknown]
  - Erythema [Unknown]
  - Oropharyngeal swelling [Unknown]
